FAERS Safety Report 8049000-3 (Version None)
Quarter: 2011Q4

REPORT INFORMATION
  Report Type: 
  Country: None (occurrence: None)
  Receive Date: 20111209
  Receipt Date: 20110902
  Transmission Date: 20120403
  Serious: No
  Sender: FDA-Public Use
  Company Number: 2011SP041910

PATIENT
  Age: 65 Year
  Sex: Male

DRUGS (4)
  1. VICTRELIS [Suspect]
     Indication: HEPATITIS C
     Dosage: 800 MG;TID; PO
     Route: 048
     Dates: start: 20110902
  2. MARIJUANA [Concomitant]
  3. PEGASYS [Suspect]
     Indication: PRODUCT USED FOR UNKNOWN INDICATION
     Dates: start: 20110804
  4. RIBAVIRIN (OHTER MFR) [Suspect]
     Indication: PRODUCT USED FOR UNKNOWN INDICATION
     Dates: start: 20110804

REACTIONS (12)
  - GASTROOESOPHAGEAL REFLUX DISEASE [None]
  - ABNORMAL DREAMS [None]
  - FATIGUE [None]
  - ANORECTAL DISCOMFORT [None]
  - NAUSEA [None]
  - DECREASED APPETITE [None]
  - THERAPEUTIC RESPONSE DECREASED [None]
  - DEPRESSION [None]
  - COUGH [None]
  - HOT FLUSH [None]
  - FLATULENCE [None]
  - INSOMNIA [None]
